FAERS Safety Report 21185246 (Version 1)
Quarter: 2022Q3

REPORT INFORMATION
  Report Type: Spontaneous
  Country: FR (occurrence: None)
  Receive Date: 20220808
  Receipt Date: 20220808
  Transmission Date: 20221027
  Serious: Yes (Other)
  Sender: FDA-Public Use
  Company Number: FR-ROCHE-3152268

PATIENT
  Sex: Female

DRUGS (2)
  1. AVASTIN [Suspect]
     Active Substance: BEVACIZUMAB
     Indication: Non-small cell lung cancer
     Route: 065
     Dates: start: 20220330
  2. APREPITANT [Concomitant]
     Active Substance: APREPITANT

REACTIONS (4)
  - Blindness [Unknown]
  - Vertigo [Unknown]
  - Headache [Unknown]
  - Goitre [Unknown]
